FAERS Safety Report 13568110 (Version 3)
Quarter: 2017Q2

REPORT INFORMATION
  Report Type: Spontaneous
  Country: US (occurrence: US)
  Receive Date: 20170522
  Receipt Date: 20170618
  Transmission Date: 20170830
  Serious: No
  Sender: FDA-Public Use
  Company Number: US-009507513-1705USA009146

PATIENT
  Age: 20 Year
  Sex: Female

DRUGS (1)
  1. NEXPLANON [Suspect]
     Active Substance: ETONOGESTREL
     Dosage: 1 ROD/3 YEARS
     Route: 059

REACTIONS (3)
  - No adverse event [Unknown]
  - Device difficult to use [Recovered/Resolved]
  - Difficulty removing drug implant [Recovered/Resolved]

NARRATIVE: CASE EVENT DATE: 20170513
